FAERS Safety Report 21200545 (Version 3)
Quarter: 2022Q4

REPORT INFORMATION
  Report Type: Spontaneous
  Country: US (occurrence: US)
  Receive Date: 20220811
  Receipt Date: 20221011
  Transmission Date: 20230113
  Serious: Yes (Death, Hospitalization, Other)
  Sender: FDA-Public Use
  Company Number: US-PFIZER INC-2021887663

PATIENT
  Age: 49 Year
  Sex: Female

DRUGS (6)
  1. PRISTIQ EXTENDED-RELEASE [Suspect]
     Active Substance: DESVENLAFAXINE SUCCINATE
     Indication: Major depression
     Dosage: 50 MG, 1X/DAY (Q AM)
     Route: 048
     Dates: start: 2012
  2. PRISTIQ EXTENDED-RELEASE [Suspect]
     Active Substance: DESVENLAFAXINE SUCCINATE
     Dosage: 100 MG, 1X/DAY (Q AM)
     Route: 048
     Dates: start: 2013, end: 20140428
  3. PRISTIQ EXTENDED-RELEASE [Suspect]
     Active Substance: DESVENLAFAXINE SUCCINATE
     Dosage: UNK (TAKEN CONSISTENTLY)
  4. LAMICTAL [Concomitant]
     Active Substance: LAMOTRIGINE
     Dosage: 200 MG
     Dates: start: 202207
  5. SEROQUEL [Concomitant]
     Active Substance: QUETIAPINE FUMARATE
     Dosage: 50 MG, AS NEEDED (PRN)
     Dates: start: 20220714
  6. KLONOPIN [Concomitant]
     Active Substance: CLONAZEPAM
     Dosage: 1 MG, AS NEEDED (PRNHS)

REACTIONS (8)
  - Death [Fatal]
  - Suicide attempt [Unknown]
  - Depression [Unknown]
  - Head injury [Recovered/Resolved with Sequelae]
  - Joint surgery [Recovered/Resolved with Sequelae]
  - Product dispensing error [Unknown]
  - Wrong technique in product usage process [Unknown]
  - Off label use [Unknown]

NARRATIVE: CASE EVENT DATE: 20140401
